FAERS Safety Report 13985189 (Version 1)
Quarter: 2017Q3

REPORT INFORMATION
  Report Type: Report from Study
  Country: None (occurrence: US)
  Receive Date: 20170919
  Receipt Date: 20170919
  Transmission Date: 20171128
  Serious: Yes (Hospitalization, Other)
  Sender: FDA-Public Use
  Company Number: US-ABBVIE-17K-163-2018169-00

PATIENT
  Age: 42 Year
  Sex: Male
  Weight: 54.48 kg

DRUGS (4)
  1. NITROPACK D-R [Concomitant]
     Indication: PRODUCT USED FOR UNKNOWN INDICATION
  2. ATORVASTATIN [Concomitant]
     Active Substance: ATORVASTATIN
     Indication: PRODUCT USED FOR UNKNOWN INDICATION
  3. METOPROLOL. [Concomitant]
     Active Substance: METOPROLOL
     Indication: PRODUCT USED FOR UNKNOWN INDICATION
  4. HUMIRA [Suspect]
     Active Substance: ADALIMUMAB
     Indication: PSORIASIS
     Route: 058
     Dates: start: 20170617

REACTIONS (6)
  - Dyspepsia [Recovered/Resolved]
  - Coronary artery occlusion [Unknown]
  - Heart rate decreased [Unknown]
  - Myocardial infarction [Recovered/Resolved]
  - Bradycardia [Recovered/Resolved]
  - Dyspepsia [Recovered/Resolved]

NARRATIVE: CASE EVENT DATE: 20170619
